FAERS Safety Report 24894675 (Version 1)
Quarter: 2025Q1

REPORT INFORMATION
  Report Type: Spontaneous
  Country: US (occurrence: None)
  Receive Date: 20250127
  Receipt Date: 20250127
  Transmission Date: 20250409
  Serious: Yes (Life-Threatening, Hospitalization)
  Sender: FDA-CTU
  Company Number: None

PATIENT
  Age: 18 Year
  Sex: Male
  Weight: 99 kg

DRUGS (1)
  1. MONTELUKAST SODIUM [Suspect]
     Active Substance: MONTELUKAST SODIUM
     Indication: Asthma
     Dosage: 1 TABLET AT BEDTIME ORAL
     Route: 048

REACTIONS (5)
  - Depression [None]
  - Aggression [None]
  - Suicidal ideation [None]
  - Intentional self-injury [None]
  - Head injury [None]

NARRATIVE: CASE EVENT DATE: 20221026
